FAERS Safety Report 8799151 (Version 3)
Quarter: 2015Q2

REPORT INFORMATION
  Report Type: Spontaneous
  Country: US (occurrence: US)
  Receive Date: 20120920
  Receipt Date: 20150513
  Transmission Date: 20150821
  Serious: No
  Sender: FDA-Public Use
  Company Number: US-ASTRAZENECA-2012SE14083

PATIENT
  Age: 26848 Day
  Sex: Female
  Weight: 72.6 kg

DRUGS (52)
  1. CALCIUM CARBONATE. [Concomitant]
     Active Substance: CALCIUM CARBONATE
  2. HYDROCHLOROTHIAZIDE. [Concomitant]
     Active Substance: HYDROCHLOROTHIAZIDE
     Indication: BLOOD PRESSURE ABNORMAL
     Route: 048
  3. LASIX [Concomitant]
     Active Substance: FUROSEMIDE
     Indication: OEDEMA
     Route: 048
  4. ALBUTEROL INHALER [Concomitant]
     Active Substance: ALBUTEROL
     Indication: ASTHMA
     Dosage: 2 PUFFS PRN
     Route: 055
  5. DOCUSATE SODIUM. [Concomitant]
     Active Substance: DOCUSATE SODIUM
     Indication: CONSTIPATION
     Dosage: ONE DAILY, SOMETIMES 1 CAPSULE EXTRA AT HS
  6. CLEARLAX [Concomitant]
     Active Substance: POLYETHYLENE GLYCOL 3350
     Indication: CONSTIPATION
     Dosage: WITH 8 OZ OF H2O
     Route: 048
  7. LEVOTHYROXINE SODIUM. [Concomitant]
     Active Substance: LEVOTHYROXINE SODIUM
     Indication: THYROID DISORDER
     Route: 048
  8. IRON [Concomitant]
     Active Substance: IRON
     Route: 048
     Dates: start: 201502
  9. NEXIUM [Suspect]
     Active Substance: ESOMEPRAZOLE MAGNESIUM
     Indication: BARRETT^S OESOPHAGUS
     Route: 048
     Dates: start: 2009
  10. FLOVENT HFA [Concomitant]
     Active Substance: FLUTICASONE PROPIONATE
     Dosage: 1 PUFF USUALLY ONLY USE ONCE A DAY
  11. LANSOPRAZOLE. [Concomitant]
     Active Substance: LANSOPRAZOLE
  12. EZETIMIBE. [Concomitant]
     Active Substance: EZETIMIBE
  13. OXYCODONE [Concomitant]
     Active Substance: OXYCODONE
     Indication: PAIN
     Dosage: 1 DF BID AM, HALF TAB 1100-1200, AND AT 2000, HS TAKING 1-A5 TABLETS TO 1 AND HALF TAB
     Route: 048
  14. OXYCODONE [Concomitant]
     Active Substance: OXYCODONE
     Indication: FAECES SOFT
     Dosage: 1 DF BID AM, HALF TAB 1100-1200, AND AT 2000, HS TAKING 1-A5 TABLETS TO 1 AND HALF TAB
     Route: 048
  15. TYLENOL [Concomitant]
     Active Substance: ACETAMINOPHEN
     Indication: PAIN
     Dosage: HALF TO ONE TAB, PRN
  16. CYCLOBENZAPRINE [Concomitant]
     Active Substance: CYCLOBENZAPRINE
     Indication: MUSCLE SPASMS
  17. ALBUTEROL INHALER [Concomitant]
     Active Substance: ALBUTEROL
     Indication: DYSPNOEA
     Dosage: 2 PUFFS PRN
     Route: 055
  18. MOBIC [Concomitant]
     Active Substance: MELOXICAM
  19. GLIPIZIDE. [Concomitant]
     Active Substance: GLIPIZIDE
     Indication: DIABETES MELLITUS
     Dosage: 2 TAB IN AM AND A TAB ACS
     Route: 048
  20. EPIPEN INJECTOR [Concomitant]
     Indication: ANAPHYLACTIC REACTION
  21. AMLODIPINE [Concomitant]
     Active Substance: AMLODIPINE BESYLATE
     Indication: BLOOD PRESSURE ABNORMAL
     Route: 048
  22. GARLIC. [Concomitant]
     Active Substance: GARLIC
  23. GLIPIZIDE. [Concomitant]
     Active Substance: GLIPIZIDE
     Indication: DIABETES MELLITUS
     Route: 048
  24. HYDROCHLOROTHIAZIDE. [Concomitant]
     Active Substance: HYDROCHLOROTHIAZIDE
     Indication: BLOOD PRESSURE ABNORMAL
     Route: 048
  25. LASIX [Concomitant]
     Active Substance: FUROSEMIDE
     Indication: SWELLING
     Route: 048
  26. INSULIN SLIDING SCALE [Concomitant]
     Indication: DIABETES MELLITUS
     Dosage: AT BEDTIME
     Route: 058
     Dates: start: 2010
  27. MELOXICAM. [Concomitant]
     Active Substance: MELOXICAM
     Indication: ARTHRITIS
     Route: 048
  28. LISINOPRIL. [Suspect]
     Active Substance: LISINOPRIL
     Route: 048
  29. NEXIUM [Suspect]
     Active Substance: ESOMEPRAZOLE MAGNESIUM
     Indication: GASTROOESOPHAGEAL REFLUX DISEASE
     Route: 048
     Dates: start: 2009
  30. ALLEGRA [Concomitant]
     Active Substance: FEXOFENADINE HYDROCHLORIDE
  31. ASPIRIN. [Concomitant]
     Active Substance: ASPIRIN
     Dosage: 1 TABLET DAILY USUALLY AT 2000
  32. OXYCODONE [Concomitant]
     Active Substance: OXYCODONE
     Indication: FAECES SOFT
     Dosage: HALF A TABLET AT 11 AM AND 4 PM AND 1 AND A HALF TABLETS AT BEDTIME
     Route: 048
  33. LASIX [Concomitant]
     Active Substance: FUROSEMIDE
     Indication: SWELLING
     Route: 048
  34. SEREVENT DISKUS [Concomitant]
     Active Substance: SALMETEROL XINAFOATE
     Dosage: 1 PUFF USUALLY ONLY USE ONCE A DAY
  35. JANUVIA [Concomitant]
     Active Substance: SITAGLIPTIN PHOSPHATE
  36. DILTIAZEM [Concomitant]
     Active Substance: DILTIAZEM
     Indication: BLOOD PRESSURE ABNORMAL
     Route: 048
  37. CYCLOBENZAPRINE [Concomitant]
     Active Substance: CYCLOBENZAPRINE
     Indication: MUSCLE SPASMS
     Dosage: EVERY SIX HOURS PRN PAIN
  38. COD LIVER OIL [Concomitant]
     Active Substance: COD LIVER OIL
  39. EPIPEN INJECTOR [Concomitant]
     Indication: ARTHROPOD STING
  40. AMLODIPINE [Concomitant]
     Active Substance: AMLODIPINE BESYLATE
     Indication: BLOOD PRESSURE ABNORMAL
     Route: 048
  41. LISINOPRIL. [Suspect]
     Active Substance: LISINOPRIL
     Route: 048
  42. NOVOLOG INSULIN [Concomitant]
     Dosage: ACB, ACL, ACS AND HS DEPENDS ON BGS
     Route: 058
  43. OXYCODONE [Concomitant]
     Active Substance: OXYCODONE
     Indication: PAIN
     Dosage: HALF A TABLET AT 11 AM AND 4 PM AND 1 AND A HALF TABLETS AT BEDTIME
     Route: 048
  44. FISH OIL [Concomitant]
     Active Substance: FISH OIL
     Route: 048
  45. ERGOCALCIFEROL. [Concomitant]
     Active Substance: ERGOCALCIFEROL
  46. IRON [Concomitant]
     Active Substance: IRON
     Route: 048
  47. ATENOLOL. [Suspect]
     Active Substance: ATENOLOL
     Route: 048
  48. METFORMIN [Suspect]
     Active Substance: METFORMIN HYDROCHLORIDE
     Dosage: (NON AZ PRODUCT)
     Route: 065
  49. LANTUS [Concomitant]
     Active Substance: INSULIN GLARGINE
     Indication: DIABETES MELLITUS
     Route: 058
     Dates: start: 2010
  50. FERROUS SULFATE [Concomitant]
     Active Substance: FERROUS SULFATE\FERROUS SULFATE, DRIED
     Indication: RESTLESS LEGS SYNDROME
     Dosage: 1 TABLET DAILY AT 2000
  51. LASIX [Concomitant]
     Active Substance: FUROSEMIDE
     Indication: OEDEMA
     Route: 048
  52. EPIPEN [Concomitant]
     Active Substance: EPINEPHRINE

REACTIONS (16)
  - Arthralgia [Unknown]
  - Haemoglobin decreased [Unknown]
  - Muscle spasms [Unknown]
  - Pain [Not Recovered/Not Resolved]
  - Selective mutism [Unknown]
  - Back pain [Unknown]
  - Vomiting [Unknown]
  - Off label use [Unknown]
  - Pain [Unknown]
  - Fatigue [Unknown]
  - Drug hypersensitivity [Unknown]
  - Tremor [Unknown]
  - Drug dose omission [Not Recovered/Not Resolved]
  - Asthenia [Unknown]
  - Nausea [Unknown]
  - Hyperhidrosis [Unknown]

NARRATIVE: CASE EVENT DATE: 20150411
